FAERS Safety Report 4886023-7 (Version None)
Quarter: 2006Q1

REPORT INFORMATION
  Report Type: 
  Country: None (occurrence: None)
  Receive Date: 20060117
  Receipt Date: 20060105
  Transmission Date: 20060701
  Serious: Yes (Death, Hospitalization, Other)
  Sender: FDA-Public Use
  Company Number: 2005-12-1269

PATIENT
  Age: 48 Year
  Sex: Male
  Weight: 61.2356 kg

DRUGS (6)
  1. PEG-INTRON [Suspect]
     Indication: HEPATITIS C
     Dosage: 150 UG QW SUBCUTANEOUS
     Route: 058
     Dates: start: 20050701, end: 20051201
  2. REBETOL [Suspect]
     Indication: HEPATITIS C
     Dosage: 1200-1000 MG* ORAL
     Route: 048
     Dates: start: 20050701, end: 20050101
  3. REBETOL [Suspect]
     Indication: HEPATITIS C
     Dosage: 1200-1000 MG* ORAL
     Route: 048
     Dates: start: 20050101, end: 20051201
  4. IBUPROFEN [Suspect]
  5. TRAMADOL HCL [Concomitant]
  6. DIAZEPAM [Concomitant]

REACTIONS (16)
  - ASTHENIA [None]
  - BLINDNESS [None]
  - CARDIO-RESPIRATORY ARREST [None]
  - DISEASE RECURRENCE [None]
  - DIZZINESS [None]
  - DYSSTASIA [None]
  - GASTROENTERITIS [None]
  - HYPOKALAEMIA [None]
  - INFLUENZA LIKE ILLNESS [None]
  - MALAISE [None]
  - METABOLIC ACIDOSIS [None]
  - PANCREATITIS [None]
  - PARAESTHESIA [None]
  - PYREXIA [None]
  - VOMITING [None]
  - WEIGHT DECREASED [None]
